FAERS Safety Report 11064829 (Version 2)
Quarter: 2015Q2

REPORT INFORMATION
  Report Type: Spontaneous
  Country: US (occurrence: US)
  Receive Date: 20150424
  Receipt Date: 20150524
  Transmission Date: 20150821
  Serious: No
  Sender: FDA-Public Use
  Company Number: US-JNJFOC-20140820353

PATIENT
  Sex: Female

DRUGS (3)
  1. CLARITIN [Concomitant]
     Active Substance: LORATADINE
     Indication: MULTIPLE ALLERGIES
     Route: 048
  2. CLONIDINE. [Concomitant]
     Active Substance: CLONIDINE
     Indication: SLEEP DISORDER
     Route: 048
     Dates: start: 2013
  3. METHYLPHENIDATE HYDROCHLORIDE. [Suspect]
     Active Substance: METHYLPHENIDATE HYDROCHLORIDE
     Indication: ATTENTION DEFICIT/HYPERACTIVITY DISORDER
     Route: 048

REACTIONS (3)
  - Therapeutic response unexpected [Unknown]
  - Wrong technique in drug usage process [Unknown]
  - Drug dose omission [Unknown]
